FAERS Safety Report 13881535 (Version 2)
Quarter: 2017Q3

REPORT INFORMATION
  Report Type: Spontaneous
  Country: US (occurrence: US)
  Receive Date: 20170818
  Receipt Date: 20170825
  Transmission Date: 20171127
  Serious: No
  Sender: FDA-Public Use
  Company Number: US-PFIZER INC-2017355090

PATIENT
  Age: 82 Year
  Sex: Male
  Weight: 81.63 kg

DRUGS (3)
  1. BOSULIF [Suspect]
     Active Substance: BOSUTINIB MONOHYDRATE
     Indication: CHRONIC MYELOID LEUKAEMIA
     Dosage: 500 MG, DAILY
     Route: 048
     Dates: start: 20170714
  2. BOSULIF [Suspect]
     Active Substance: BOSUTINIB MONOHYDRATE
     Dosage: 100 MG, ALTERNATE DAY(EVERY OTHER DAY)
     Route: 048
     Dates: start: 20170714, end: 20170821
  3. BOSULIF [Suspect]
     Active Substance: BOSUTINIB MONOHYDRATE
     Dosage: UNK [BOSULIF DOSE WAS DECREASED TO 1 TABLET EVERY OTHER DAY]

REACTIONS (4)
  - Dyspnoea [Unknown]
  - Fatigue [Unknown]
  - Petechiae [Unknown]
  - Anxiety [Unknown]
